FAERS Safety Report 8859400 (Version 1)
Quarter: 2012Q4

REPORT INFORMATION
  Report Type: 
  Country: GB (occurrence: GB)
  Receive Date: 20121024
  Receipt Date: 20121024
  Transmission Date: 20130627
  Serious: Yes (Hospitalization)
  Sender: FDA-Public Use
  Company Number: GB-JNJFOC-20121012013

PATIENT
  Age: 67 Year
  Sex: Male

DRUGS (6)
  1. XARELTO [Suspect]
     Indication: THROMBOSIS PROPHYLAXIS
     Route: 048
     Dates: start: 201004
  2. XARELTO [Suspect]
     Indication: KNEE ARTHROPLASTY
     Route: 048
     Dates: start: 201004
  3. PARACETAMOL [Concomitant]
     Route: 048
  4. LANSOPRAZOLE [Concomitant]
     Route: 048
  5. BENDROFLUMETHIAZIDE [Concomitant]
     Route: 048
  6. CANDESARTAN CILEXETIL [Concomitant]
     Route: 048

REACTIONS (3)
  - Upper gastrointestinal haemorrhage [Unknown]
  - Iatrogenic injury [Unknown]
  - Blood potassium decreased [Unknown]
